FAERS Safety Report 9471463 (Version 2)
Quarter: 2013Q3

REPORT INFORMATION
  Report Type: Spontaneous
  Country: US (occurrence: US)
  Receive Date: 20130822
  Receipt Date: 20130829
  Transmission Date: 20140515
  Serious: Yes (Hospitalization)
  Sender: FDA-Public Use
  Company Number: US-GILEAD-2013-0081819

PATIENT
  Age: 10 Year
  Sex: Female

DRUGS (2)
  1. LETAIRIS [Suspect]
     Indication: PULMONARY HYPERTENSION
     Dosage: 5 MG, QD
     Dates: start: 20130726
  2. LETAIRIS [Suspect]
     Indication: DUCTUS ARTERIOSUS PREMATURE CLOSURE

REACTIONS (1)
  - Tonsillectomy [Not Recovered/Not Resolved]
